FAERS Safety Report 16909204 (Version 1)
Quarter: 2019Q4

REPORT INFORMATION
  Report Type: Spontaneous
  Country: GB (occurrence: GB)
  Receive Date: 20191011
  Receipt Date: 20191011
  Transmission Date: 20200122
  Serious: Yes (Other)
  Sender: FDA-Public Use
  Company Number: GB-PERRIGO-19GB012059

PATIENT
  Age: 22 Year
  Sex: Female
  Weight: 65 kg

DRUGS (1)
  1. FLU STRENGTH ALL IN ONE [ACETAMINOPHEN\CETYLPYRIDINIUM\GUAIFENESIN\PHENYLEPHRINE] [Suspect]
     Active Substance: ACETAMINOPHEN\CETYLPYRIDINIUM\GUAIFENESIN\PHENYLEPHRINE
     Indication: NASOPHARYNGITIS
     Dosage: 20 MG, UNK
     Route: 048
     Dates: start: 20190920, end: 20190922

REACTIONS (8)
  - Abdominal discomfort [Recovering/Resolving]
  - Palpitations [Not Recovered/Not Resolved]
  - Hyperhidrosis [Unknown]
  - Heart rate decreased [Unknown]
  - Night sweats [Not Recovered/Not Resolved]
  - Angina pectoris [Unknown]
  - Panic reaction [Unknown]
  - Abdominal pain upper [Unknown]

NARRATIVE: CASE EVENT DATE: 20190920
